FAERS Safety Report 16500346 (Version 3)
Quarter: 2020Q3

REPORT INFORMATION
  Report Type: Spontaneous
  Country: GB (occurrence: GB)
  Receive Date: 20190701
  Receipt Date: 20200217
  Transmission Date: 20201104
  Serious: Yes (Hospitalization, Other)
  Sender: FDA-Public Use
  Company Number: GB-ROCHE-2341627

PATIENT
  Age: 59 Year
  Sex: Male

DRUGS (1)
  1. ALECTINIB. [Suspect]
     Active Substance: ALECTINIB
     Indication: NON-SMALL CELL LUNG CANCER
     Route: 065

REACTIONS (6)
  - Cardiac arrest [Unknown]
  - Syncope [Unknown]
  - Pulmonary embolism [Unknown]
  - Chest pain [Unknown]
  - Ventricular fibrillation [Unknown]
  - Arrhythmia [Unknown]

NARRATIVE: CASE EVENT DATE: 2018
